FAERS Safety Report 11785529 (Version 4)
Quarter: 2016Q1

REPORT INFORMATION
  Report Type: Spontaneous
  Country: US (occurrence: US)
  Receive Date: 20151130
  Receipt Date: 20160120
  Transmission Date: 20160525
  Serious: Yes (Death, Hospitalization, Other)
  Sender: FDA-Public Use
  Company Number: US-ASTELLAS-2015US044290

PATIENT
  Age: 70 Year
  Sex: Female

DRUGS (4)
  1. MYCAMINE [Suspect]
     Active Substance: MICAFUNGIN SODIUM
     Indication: DEVICE RELATED INFECTION
  2. FLUCYTOSINE. [Concomitant]
     Active Substance: FLUCYTOSINE
     Indication: DEVICE RELATED INFECTION
  3. MYCAMINE [Suspect]
     Active Substance: MICAFUNGIN SODIUM
     Indication: ENDOCARDITIS CANDIDA
     Route: 065
  4. FLUCYTOSINE. [Concomitant]
     Active Substance: FLUCYTOSINE
     Indication: ENDOCARDITIS CANDIDA
     Route: 065

REACTIONS (5)
  - Hepatic failure [Not Recovered/Not Resolved]
  - Death [Fatal]
  - Cardiac failure [Not Recovered/Not Resolved]
  - Cardiogenic shock [Unknown]
  - Renal failure [Not Recovered/Not Resolved]
